FAERS Safety Report 18755621 (Version 2)
Quarter: 2021Q2

REPORT INFORMATION
  Report Type: Spontaneous
  Country: FI (occurrence: FI)
  Receive Date: 20210119
  Receipt Date: 20210413
  Transmission Date: 20210717
  Serious: Yes (Other)
  Sender: FDA-Public Use
  Company Number: FI-NOVOPROD-779069

PATIENT
  Age: 62 Year
  Sex: Male
  Weight: 50 kg

DRUGS (4)
  1. PROTAPHANE [Concomitant]
     Active Substance: INSULIN HUMAN
     Indication: TYPE 1 DIABETES MELLITUS
     Dosage: UNK (QD, INJECTED IN THE EVENING)
     Route: 058
  2. NOVORAPID [Concomitant]
     Active Substance: INSULIN ASPART
     Indication: TYPE 1 DIABETES MELLITUS
     Dosage: UNK (INSULIN AT MEAL TIMES)
     Route: 058
  3. NOVOMIX 30 FLEXPEN [Suspect]
     Active Substance: INSULIN ASPART
     Indication: TYPE 1 DIABETES MELLITUS
     Dosage: 14 IU, QD
     Route: 058
  4. NOVOMIX 30 FLEXPEN [Suspect]
     Active Substance: INSULIN ASPART
     Indication: TYPE 1 DIABETES MELLITUS
     Dosage: 14 IU, QD
     Route: 058

REACTIONS (4)
  - Incorrect dose administered by device [Unknown]
  - Urinary tract infection [Unknown]
  - Device mechanical issue [Unknown]
  - Blood glucose fluctuation [Recovered/Resolved]

NARRATIVE: CASE EVENT DATE: 202011
